FAERS Safety Report 16862857 (Version 1)
Quarter: 2019Q3

REPORT INFORMATION
  Report Type: Spontaneous
  Country: CA (occurrence: CA)
  Receive Date: 20190927
  Receipt Date: 20190927
  Transmission Date: 20191005
  Serious: Yes (Disabling)
  Sender: FDA-Public Use
  Company Number: CA-TOLMAR, INC.-19CA000229

PATIENT
  Age: 73 Year
  Sex: Male

DRUGS (3)
  1. ELIGARD [Suspect]
     Active Substance: LEUPROLIDE ACETATE
     Indication: PROSTATE CANCER
     Dosage: 30 MILLIGRAM, EVERY 4 MONTHS
     Route: 058
     Dates: start: 201805
  2. ELIGARD [Suspect]
     Active Substance: LEUPROLIDE ACETATE
     Dosage: UNK
  3. ELIGARD [Suspect]
     Active Substance: LEUPROLIDE ACETATE
     Indication: PROSTATE CANCER
     Dosage: 22.5 MILLIGRAM, Q3MONTHS
     Route: 065
     Dates: start: 2017

REACTIONS (4)
  - Injection site mass [Recovered/Resolved]
  - Injection site pain [Recovered/Resolved]
  - Amnesia [Not Recovered/Not Resolved]
  - Product dose omission [Unknown]

NARRATIVE: CASE EVENT DATE: 20181102
